FAERS Safety Report 8467835 (Version 3)
Quarter: 2012Q4

REPORT INFORMATION
  Report Type: 
  Country: US (occurrence: US)
  Receive Date: 20120229
  Receipt Date: 20121108
  Transmission Date: 20130627
  Serious: Yes (Hospitalization, Other)
  Sender: FDA-Public Use
  Company Number: PHEH2010US03851

PATIENT
  Age: 53 Year
  Sex: Female

DRUGS (13)
  1. TEGRETOL [Suspect]
     Indication: BIPOLAR DISORDER
     Dates: end: 200806
  2. LAMICTAL [Suspect]
  3. DEPAKOTE [Suspect]
  4. DILANTIN [Suspect]
     Dosage: 300 mg, QD
  5. AMBIEN [Concomitant]
     Dosage: 10 mg, QD
     Route: 048
  6. SEROQUEL [Concomitant]
     Dosage: 100 mg, QD
     Route: 048
  7. ADDERALL [Concomitant]
  8. VICODIN [Concomitant]
     Dosage: 1 DF, BID
  9. ATIVAN [Concomitant]
     Dosage: 1 mg, QD
  10. GLEEVEC [Concomitant]
     Dosage: 600 mg, QD
     Route: 048
  11. KEPPRA [Concomitant]
     Dosage: 500 mg, BID
     Route: 048
  12. HYDROCORTISONE [Concomitant]
     Dosage: 10 mg, BID
     Route: 048
  13. EFFEXOR XR [Concomitant]
     Dosage: 150 mg, QD

REACTIONS (66)
  - Overdose [Unknown]
  - Stevens-Johnson syndrome [Unknown]
  - Toxic epidermal necrolysis [Unknown]
  - Rash [Unknown]
  - Pruritus [Unknown]
  - Skin discolouration [Unknown]
  - Skin exfoliation [Unknown]
  - Alopecia [Unknown]
  - Nail disorder [Unknown]
  - Pigmentation disorder [Unknown]
  - Urticaria [Unknown]
  - Swelling [Unknown]
  - Skin lesion [Unknown]
  - Skin burning sensation [Unknown]
  - Mucous membrane disorder [Unknown]
  - Scar [Unknown]
  - Blindness [Unknown]
  - Internal injury [Unknown]
  - Hypersensitivity [Unknown]
  - Oral mucosal blistering [Unknown]
  - Deformity [Unknown]
  - Disability [Unknown]
  - Pain [Unknown]
  - Drug abuse [Unknown]
  - Sexual abuse [Unknown]
  - Suicidal ideation [Unknown]
  - Dysuria [Unknown]
  - Schizophrenia [Unknown]
  - Attention deficit/hyperactivity disorder [Unknown]
  - Convulsion [Unknown]
  - Depression [Unknown]
  - Gonorrhoea [Unknown]
  - Dysmenorrhoea [Unknown]
  - Substance abuse [Unknown]
  - Hypocalcaemia [Unknown]
  - Renal failure [Recovered/Resolved]
  - Polydipsia psychogenic [Unknown]
  - Head injury [Unknown]
  - Vaginitis bacterial [Unknown]
  - Paronychia [Unknown]
  - Psychotic disorder [Recovered/Resolved]
  - Chronic myeloid leukaemia [Unknown]
  - Staphylococcal infection [Unknown]
  - Hallucination, auditory [Unknown]
  - Hallucination, visual [Unknown]
  - Hypoglycaemia [Unknown]
  - Bone cancer [Unknown]
  - Anxiety [Unknown]
  - Plasma cell myeloma [Unknown]
  - Erythema nodosum [Unknown]
  - Abscess limb [Unknown]
  - Diplopia [Unknown]
  - Toxicity to various agents [Unknown]
  - Escherichia bacteraemia [Unknown]
  - Escherichia urinary tract infection [Unknown]
  - Haematoma [Unknown]
  - Hyponatraemia [Unknown]
  - Sinus tachycardia [Unknown]
  - Syncope [Unknown]
  - Hyperthyroidism [Unknown]
  - Hypotension [Unknown]
  - Gastroenteritis [Recovered/Resolved]
  - Addison^s disease [Unknown]
  - Spinal osteoarthritis [Unknown]
  - Irritable bowel syndrome [Unknown]
  - Adrenal insufficiency [Unknown]
